FAERS Safety Report 25234095 (Version 1)
Quarter: 2025Q2

REPORT INFORMATION
  Report Type: Spontaneous
  Country: EG (occurrence: EG)
  Receive Date: 20250424
  Receipt Date: 20250424
  Transmission Date: 20250717
  Serious: Yes (Hospitalization, Other)
  Sender: MERCK SHARP & DOHME LLC
  Company Number: EG-009507513-2278683

PATIENT
  Age: 48 Year
  Sex: Female

DRUGS (5)
  1. KEYTRUDA [Suspect]
     Active Substance: PEMBROLIZUMAB
     Indication: Triple negative breast cancer
     Dosage: 200 MG, Q3W
     Route: 042
     Dates: start: 20240120, end: 202405
  2. CRESTOR [Concomitant]
     Active Substance: ROSUVASTATIN CALCIUM
     Indication: Blood cholesterol
     Route: 048
  3. Asperin Protect [Concomitant]
     Route: 065
  4. Aproval [Concomitant]
     Indication: Hypertension
     Route: 065
  5. (Taxol + Carboplatin) [Concomitant]
     Indication: Triple negative breast cancer
     Route: 042

REACTIONS (4)
  - Hypothyroidism [Not Recovered/Not Resolved]
  - Hysterectomy [Unknown]
  - Oophorectomy [Unknown]
  - Therapy cessation [Unknown]

NARRATIVE: CASE EVENT DATE: 20240101
